FAERS Safety Report 12328498 (Version 1)
Quarter: 2016Q2

REPORT INFORMATION
  Report Type: Spontaneous
  Country: US (occurrence: US)
  Receive Date: 20160503
  Receipt Date: 20160503
  Transmission Date: 20160815
  Serious: No
  Sender: FDA-Public Use
  Company Number: US-BEH-2015048562

PATIENT
  Age: 62 Year
  Sex: Female
  Weight: 57 kg

DRUGS (22)
  1. ACETAMINOPHEN. [Concomitant]
     Active Substance: ACETAMINOPHEN
  2. VENTOLIN [Concomitant]
     Active Substance: ALBUTEROL SULFATE
  3. TELMISARTAN. [Concomitant]
     Active Substance: TELMISARTAN
  4. FOLIC ACID. [Concomitant]
     Active Substance: FOLIC ACID
  5. REMICADE [Concomitant]
     Active Substance: INFLIXIMAB
  6. DIPHENHYDRAMINE. [Concomitant]
     Active Substance: DIPHENHYDRAMINE
  7. LIDOCAINE. [Concomitant]
     Active Substance: LIDOCAINE
  8. EPIPEN [Concomitant]
     Active Substance: EPINEPHRINE
  9. BUPROPION. [Concomitant]
     Active Substance: BUPROPION
  10. SPIRONOLACTONE. [Concomitant]
     Active Substance: SPIRONOLACTONE
  11. ADVAIR HFA [Concomitant]
     Active Substance: FLUTICASONE PROPIONATE\SALMETEROL XINAFOATE
  12. DICYCLOMINE [Concomitant]
     Active Substance: DICYCLOMINE HYDROCHLORIDE
  13. HIZENTRA [Suspect]
     Active Substance: HUMAN IMMUNOGLOBULIN G
     Indication: IMMUNODEFICIENCY COMMON VARIABLE
     Dosage: 1G 5ML VIAL
     Route: 058
     Dates: start: 20150128, end: 20150224
  14. VITAMIN D [Concomitant]
     Active Substance: CHOLECALCIFEROL
  15. HIZENTRA [Suspect]
     Active Substance: HUMAN IMMUNOGLOBULIN G
     Route: 058
  16. HIZENTRA [Suspect]
     Active Substance: HUMAN IMMUNOGLOBULIN G
     Dosage: 4G 20ML VIAL
     Route: 058
  17. FAMOTIDINE. [Concomitant]
     Active Substance: FAMOTIDINE
  18. TRAMADOL. [Concomitant]
     Active Substance: TRAMADOL
  19. MONTELUKAST [Concomitant]
     Active Substance: MONTELUKAST SODIUM
  20. AMLODIPINE [Concomitant]
     Active Substance: AMLODIPINE BESYLATE
  21. TRAZODONE [Concomitant]
     Active Substance: TRAZODONE HYDROCHLORIDE
  22. HYDRALAZINE [Concomitant]
     Active Substance: HYDRALAZINE HYDROCHLORIDE

REACTIONS (2)
  - Erythema [Unknown]
  - Pruritus [Unknown]
